FAERS Safety Report 10201999 (Version 1)
Quarter: 2014Q2

REPORT INFORMATION
  Report Type: Spontaneous
  Country: FR (occurrence: FR)
  Receive Date: 20140528
  Receipt Date: 20140528
  Transmission Date: 20141212
  Serious: Yes (Hospitalization)
  Sender: FDA-Public Use
  Company Number: FR-TEVA-482588ISR

PATIENT
  Sex: Female

DRUGS (2)
  1. AZILECT [Suspect]
     Dates: start: 20140216, end: 20140316
  2. MODOPAR [Concomitant]

REACTIONS (2)
  - Pyelonephritis [Recovered/Resolved]
  - Orthostatic hypotension [Recovered/Resolved]
